FAERS Safety Report 5814587-5 (Version None)
Quarter: 2008Q3

REPORT INFORMATION
  Report Type: 
  Country: None (occurrence: None)
  Receive Date: 20080718
  Receipt Date: 20071022
  Transmission Date: 20090109
  Serious: No
  Sender: FDA-Public Use
  Company Number: US-KINGPHARMUSA00001-K200701373

PATIENT

DRUGS (1)
  1. LEVOXYL [Suspect]
     Indication: HYPOTHYROIDISM
     Dosage: 50 MCG, 2 TABS QD
     Route: 048
     Dates: start: 20071001

REACTIONS (6)
  - ARTHRALGIA [None]
  - EAR CONGESTION [None]
  - HYPERSENSITIVITY [None]
  - MUCOUS MEMBRANE DISORDER [None]
  - MUSCLE SPASMS [None]
  - NASAL CONGESTION [None]
